FAERS Safety Report 8289378-9 (Version None)
Quarter: 2012Q2

REPORT INFORMATION
  Report Type: 
  Country: None (occurrence: None)
  Receive Date: 20120417
  Receipt Date: 20120323
  Transmission Date: 20120825
  Serious: No
  Sender: FDA-Public Use
  Company Number: US-BAYER-2012-028910

PATIENT
  Age: 22 Year
  Sex: Female

DRUGS (3)
  1. VICODIN [Suspect]
     Indication: PAIN
     Dosage: UNK
     Dates: start: 20110921
  2. MIRENA [Suspect]
  3. ACYCLOVIR [Concomitant]
     Indication: HERPES SIMPLEX
     Dosage: 400 MG, UNK
     Route: 048

REACTIONS (3)
  - PROCEDURAL PAIN [None]
  - PROCEDURAL HAEMORRHAGE [None]
  - DYSPAREUNIA [None]
